FAERS Safety Report 11693158 (Version 1)
Quarter: 2015Q4

REPORT INFORMATION
  Report Type: Spontaneous
  Country: US (occurrence: None)
  Receive Date: 20151102
  Receipt Date: 20151102
  Transmission Date: 20160304
  Serious: Yes (Hospitalization, Other)
  Sender: FDA-Public Use
  Company Number: None

PATIENT
  Age: 21 Year
  Sex: Female
  Weight: 70.31 kg

DRUGS (5)
  1. BRINTELLIX [Suspect]
     Active Substance: VORTIOXETINE HYDROBROMIDE
     Indication: MAJOR DEPRESSION
     Dosage: BRINTELLIX  ONCE DAILY  TAKEN BY MOUTH
     Route: 048
     Dates: start: 20151012, end: 20151027
  2. KLONOPIN [Concomitant]
     Active Substance: CLONAZEPAM
  3. BRINTELLIX [Suspect]
     Active Substance: VORTIOXETINE HYDROBROMIDE
     Indication: ANXIETY
     Dosage: BRINTELLIX  ONCE DAILY  TAKEN BY MOUTH
     Route: 048
     Dates: start: 20151012, end: 20151027
  4. WOMAN^S MULTIVITAMIN [Concomitant]
  5. FISH OIL SUPPLEMENTS [Concomitant]
     Active Substance: FISH OIL

REACTIONS (9)
  - Dyskinesia [None]
  - Therapy cessation [None]
  - Impaired work ability [None]
  - Seizure [None]
  - Suicidal ideation [None]
  - Confusional state [None]
  - Diarrhoea [None]
  - Abdominal pain upper [None]
  - Head titubation [None]

NARRATIVE: CASE EVENT DATE: 20151027
